FAERS Safety Report 8901418 (Version 1)
Quarter: 2012Q4

REPORT INFORMATION
  Report Type: Report from Study
  Country: CA (occurrence: CA)
  Receive Date: 20121109
  Receipt Date: 20121109
  Transmission Date: 20130627
  Serious: Yes (Hospitalization)
  Sender: FDA-Public Use
  Company Number: CA-JNJFOC-20121017593

PATIENT
  Age: 45 Year
  Sex: Female
  Weight: 93.2 kg

DRUGS (4)
  1. REMICADE [Suspect]
     Indication: CROHN^S DISEASE
     Route: 042
     Dates: start: 20121030
  2. REMICADE [Suspect]
     Indication: CROHN^S DISEASE
     Route: 042
     Dates: start: 1999
  3. ATIVAN [Concomitant]
     Indication: ROAD TRAFFIC ACCIDENT
     Dosage: rarely
     Route: 065
  4. OLMETEC [Concomitant]
     Indication: BLOOD PRESSURE INCREASED
     Dosage: rarely
     Route: 065

REACTIONS (1)
  - Nephrolithiasis [Recovered/Resolved]
